FAERS Safety Report 24932448 (Version 1)
Quarter: 2025Q1

REPORT INFORMATION
  Report Type: Report from Study
  Country: US (occurrence: US)
  Receive Date: 20250205
  Receipt Date: 20250205
  Transmission Date: 20250408
  Serious: No
  Sender: EXELIXIS
  Company Number: US-EXELIXIS-CABO-24080812

PATIENT
  Sex: Female

DRUGS (1)
  1. CABOMETYX [Suspect]
     Active Substance: CABOZANTINIB S-MALATE
     Indication: Metastases to kidney
     Dosage: 20 MG, QD
     Route: 048

REACTIONS (4)
  - Peripheral swelling [Recovering/Resolving]
  - Rash erythematous [Recovered/Resolved]
  - Dysphonia [Recovering/Resolving]
  - Off label use [Unknown]
